FAERS Safety Report 23451915 (Version 1)
Quarter: 2024Q1

REPORT INFORMATION
  Report Type: Spontaneous
  Country: GB (occurrence: GB)
  Receive Date: 20240129
  Receipt Date: 20240129
  Transmission Date: 20240410
  Serious: Yes (Other)
  Sender: FDA-Public Use
  Company Number: None

PATIENT
  Age: 30 Year
  Sex: Female
  Weight: 65 kg

DRUGS (9)
  1. DOXYCYCLINE [Suspect]
     Active Substance: DOXYCYCLINE
     Indication: Ill-defined disorder
     Dosage: UNK
     Route: 065
     Dates: start: 20240122
  2. CEPHALEXIN [Concomitant]
     Active Substance: CEPHALEXIN
     Indication: Ill-defined disorder
     Dosage: 1 DOSAGE FORM, TID (TAKE ONE 3 TIMES/DAY)
     Route: 065
     Dates: start: 20231226, end: 20240102
  3. DIAZEPAM [Concomitant]
     Active Substance: DIAZEPAM
     Indication: Ill-defined disorder
     Dosage: TAKE ONE OR TWO TWICE DAILY FOR UPTO 7 DAYS, BID
     Route: 065
     Dates: start: 20231205, end: 20231212
  4. Luforbec [Concomitant]
     Indication: Ill-defined disorder
     Dosage: INHALE 2 PUFFS TWICE A DAY MAX 8 DAILY  2 DOSAGE FORM, QD
     Route: 055
     Dates: start: 20231108
  5. PHENERGAN [Concomitant]
     Active Substance: PROMETHAZINE HYDROCHLORIDE
     Indication: Ill-defined disorder
     Dosage: 1 DOSAGE FORM, PM (ONE TO BE TAKEN AT NIGHT  )
     Route: 065
     Dates: start: 20231108
  6. QUETIAPINE [Concomitant]
     Active Substance: QUETIAPINE
     Indication: Ill-defined disorder
     Dosage: 1 DOSAGE FORM, BID(ONE TO BE TAKEN TWICE A DAY  )
     Route: 065
     Dates: start: 20231108
  7. ALBUTEROL [Concomitant]
     Active Substance: ALBUTEROL
     Indication: Ill-defined disorder
     Dosage: ONE OR TWO PUFFS TO BE INHALED UP TO FOUR TIME
     Route: 055
     Dates: start: 20231108
  8. SPIRIVA [Concomitant]
     Active Substance: TIOTROPIUM BROMIDE MONOHYDRATE
     Indication: Ill-defined disorder
     Dosage: TWO PUFFS TO BE INHALED ONCE DAILY QD
     Route: 055
     Dates: start: 20231108
  9. VENLAFAXINE [Concomitant]
     Active Substance: VENLAFAXINE HYDROCHLORIDE
     Indication: Ill-defined disorder
     Dosage: 300 MILLIGRAM (WITHOUT DISCUSSED UPTO FOUR TABLETS (300MG))
     Route: 065
     Dates: start: 20231108

REACTIONS (1)
  - Dyspnoea [Not Recovered/Not Resolved]

NARRATIVE: CASE EVENT DATE: 20240122
